FAERS Safety Report 8053327-9 (Version None)
Quarter: 2012Q1

REPORT INFORMATION
  Report Type: 
  Country: None (occurrence: None)
  Receive Date: 20120118
  Receipt Date: 20120110
  Transmission Date: 20120608
  Serious: Yes (Other)
  Sender: FDA-Public Use
  Company Number: US-ROCHE-782728

PATIENT
  Sex: Female
  Weight: 54.48 kg

DRUGS (2)
  1. AMNESTEEM [Suspect]
     Indication: ACNE
     Dosage: ALSO AT A DOSE OF 40 MG TWICE A DAY.
     Route: 048
     Dates: start: 20030930, end: 20040209
  2. ACCUTANE [Suspect]
     Indication: ACNE
     Route: 048
     Dates: start: 19990101, end: 20040201

REACTIONS (9)
  - VISUAL IMPAIRMENT [None]
  - STRESS [None]
  - IRRITABLE BOWEL SYNDROME [None]
  - INFLAMMATORY BOWEL DISEASE [None]
  - BLOOD CHOLESTEROL INCREASED [None]
  - LIP DRY [None]
  - COLITIS ULCERATIVE [None]
  - RHEUMATOID ARTHRITIS [None]
  - DRY EYE [None]
